FAERS Safety Report 14701199 (Version 1)
Quarter: 2018Q1

REPORT INFORMATION
  Report Type: Report from Study
  Country: JP (occurrence: JP)
  Receive Date: 20180330
  Receipt Date: 20180330
  Transmission Date: 20180509
  Serious: Yes (Hospitalization, Other)
  Sender: FDA-Public Use
  Company Number: JP-CELGENEUS-JPN-20180309753

PATIENT
  Age: 67 Year
  Sex: Male

DRUGS (21)
  1. LENADEX [Suspect]
     Active Substance: DEXAMETHASONE ACETATE
     Indication: PLASMA CELL MYELOMA
     Dosage: 40 MILLIGRAM
     Route: 048
     Dates: start: 20170728, end: 20170811
  2. BAKTAR [Concomitant]
     Active Substance: SULFAMETHOXAZOLE\TRIMETHOPRIM
     Indication: PROPHYLAXIS
     Dosage: UNKNOWN
     Route: 048
  3. GANCICLOVIR. [Concomitant]
     Active Substance: GANCICLOVIR
     Indication: ADVERSE EVENT
     Dosage: UNKNOWN
     Route: 041
  4. BENAMBAX [Concomitant]
     Active Substance: PENTAMIDINE
     Indication: PROPHYLAXIS
     Dosage: UNKNOWN
     Route: 055
  5. ZOSYN [Concomitant]
     Active Substance: PIPERACILLIN SODIUM\TAZOBACTAM SODIUM
     Indication: ADVERSE EVENT
     Dosage: UNKNOWN
     Route: 041
  6. REVLIMID [Suspect]
     Active Substance: LENALIDOMIDE
     Indication: PLASMA CELL MYELOMA
     Dosage: 10 MILLIGRAM
     Route: 048
     Dates: start: 20170728, end: 20170810
  7. FLUCONAZOLE. [Concomitant]
     Active Substance: FLUCONAZOLE
     Indication: PROPHYLAXIS
     Dosage: UNKNOWN
     Route: 048
  8. ALBUMINAR [Concomitant]
     Active Substance: ALBUMIN HUMAN
     Indication: ADVERSE EVENT
     Dosage: UNKNOWN
     Route: 041
  9. NORVASC [Concomitant]
     Active Substance: AMLODIPINE BESYLATE
     Indication: PRODUCT USED FOR UNKNOWN INDICATION
     Dosage: UNKNOWN
     Route: 048
  10. CRESTOR [Concomitant]
     Active Substance: ROSUVASTATIN CALCIUM
     Indication: PRODUCT USED FOR UNKNOWN INDICATION
     Dosage: UNKNOWN
     Route: 048
  11. VALGANCICLOVIR. [Concomitant]
     Active Substance: VALGANCICLOVIR
     Indication: ADVERSE EVENT
     Dosage: UNKNOWN
     Route: 048
  12. CEFEPIME [Concomitant]
     Active Substance: CEFEPIME HYDROCHLORIDE
     Indication: ADVERSE EVENT
     Dosage: UNKNOWN
     Route: 041
  13. GRAN [Concomitant]
     Active Substance: FILGRASTIM
     Indication: ADVERSE EVENT
     Dosage: UNKNOWN
     Route: 058
  14. ONETRAM [Concomitant]
     Active Substance: TRAMADOL HYDROCHLORIDE
     Indication: PLASMA CELL MYELOMA
     Dosage: UNKNOWN
     Route: 048
  15. VANCOMYCIN [Concomitant]
     Active Substance: VANCOMYCIN
     Indication: ADVERSE EVENT
     Dosage: UNKNOWN
     Route: 041
  16. ACICLOVIR [Concomitant]
     Active Substance: ACYCLOVIR
     Indication: PROPHYLAXIS
     Dosage: UNKNOWN
     Route: 048
  17. LANSOPRAZOLE. [Concomitant]
     Active Substance: LANSOPRAZOLE
     Indication: PROPHYLAXIS
     Dosage: UNKNOWN
     Route: 048
  18. ZOLEDRONIC ACID [Concomitant]
     Active Substance: ZOLEDRONIC ACID
     Indication: PLASMA CELL MYELOMA
     Dosage: UNKNOWN
     Route: 041
  19. LEVOFLOXACIN. [Concomitant]
     Active Substance: LEVOFLOXACIN
     Indication: ADVERSE EVENT
     Dosage: UNKNOWN
     Route: 048
  20. BAYASPIRIN [Concomitant]
     Active Substance: ASPIRIN
     Indication: PROPHYLAXIS
     Dosage: UNKNOWN
     Route: 048
  21. KENKETU GLOVENIN-I [Concomitant]
     Active Substance: HUMAN IMMUNOGLOBULIN G
     Indication: ADVERSE EVENT
     Dosage: UNKNOWN
     Route: 041

REACTIONS (6)
  - Rash [Recovered/Resolved]
  - Neutrophil count decreased [Recovered/Resolved]
  - Cytomegalovirus enteritis [Recovered/Resolved]
  - Pneumonia [Recovered/Resolved]
  - Hypoalbuminaemia [Recovering/Resolving]
  - Pyrexia [Recovered/Resolved]

NARRATIVE: CASE EVENT DATE: 20170808
